FAERS Safety Report 5294489-6 (Version None)
Quarter: 2007Q2

REPORT INFORMATION
  Report Type: 
  Country: None (occurrence: None)
  Receive Date: 20070412
  Receipt Date: 20070331
  Transmission Date: 20071010
  Serious: Yes (Hospitalization)
  Sender: FDA-Public Use
  Company Number: PHEH2007US03837

PATIENT
  Age: 71 Year

DRUGS (1)
  1. ZELNORM [Suspect]

REACTIONS (5)
  - DEHYDRATION [None]
  - EATING DISORDER [None]
  - MALAISE [None]
  - NAUSEA [None]
  - STOMACH DISCOMFORT [None]
